FAERS Safety Report 4473874-6 (Version None)
Quarter: 2004Q4

REPORT INFORMATION
  Report Type: 
  Country: None (occurrence: None)
  Receive Date: 20041008
  Receipt Date: 20041008
  Transmission Date: 20050328
  Serious: Yes (Other)
  Sender: FDA-Public Use
  Company Number: None

PATIENT
  Age: 21 Year
  Sex: Male
  Weight: 80.7403 kg

DRUGS (1)
  1. CORICIDIN [Suspect]
     Dosage: 8 TABLETS ORAL 1 DOSE(S)
     Route: 048

REACTIONS (3)
  - HALLUCINATION, VISUAL [None]
  - OVERDOSE [None]
  - VISUAL DISTURBANCE [None]
